FAERS Safety Report 9732769 (Version 2)
Quarter: 2013Q4

REPORT INFORMATION
  Report Type: Spontaneous
  Country: DE (occurrence: DE)
  Receive Date: 20131204
  Receipt Date: 20131219
  Transmission Date: 20140711
  Serious: Yes (Hospitalization)
  Sender: FDA-Public Use
  Company Number: DE-GLAXOSMITHKLINE-D0081925A

PATIENT
  Sex: Female
  Weight: 75 kg

DRUGS (5)
  1. TROBALT [Suspect]
     Indication: EPILEPSY
     Dosage: 50MG IN THE MORNING
     Route: 048
     Dates: start: 20120613
  2. BISOPROLOL [Concomitant]
     Dosage: 5MG IN THE MORNING
     Route: 048
  3. SIMVASTATIN [Concomitant]
     Dosage: 10MG AT NIGHT
     Route: 048
  4. LEVETIRACETAM [Concomitant]
     Dosage: 1000MG THREE TIMES PER DAY
     Route: 048
  5. BETAHISTINE [Concomitant]
     Dosage: 12MG THREE TIMES PER DAY
     Route: 048
     Dates: start: 201209

REACTIONS (22)
  - Hydronephrosis [Recovering/Resolving]
  - Dysuria [Recovering/Resolving]
  - Micturition disorder [Recovering/Resolving]
  - Hallucination, visual [Recovered/Resolved]
  - Nephrolithiasis [Recovered/Resolved]
  - Dizziness [Unknown]
  - Weight increased [Unknown]
  - Tinnitus [Unknown]
  - Palpitations [Recovering/Resolving]
  - Gait disturbance [Unknown]
  - Fall [Recovered/Resolved]
  - Sleep disorder [Recovering/Resolving]
  - Pyelocaliectasis [Recovering/Resolving]
  - Flank pain [Recovering/Resolving]
  - Renal impairment [Recovering/Resolving]
  - Urine flow decreased [Recovering/Resolving]
  - Abdominal discomfort [Unknown]
  - Urinary retention [Recovering/Resolving]
  - Blood urine present [Recovered/Resolved]
  - Ureteric dilatation [Unknown]
  - Dysuria [Unknown]
  - Urinary hesitation [Unknown]
